FAERS Safety Report 11255458 (Version 1)
Quarter: 2015Q3

REPORT INFORMATION
  Report Type: Spontaneous
  Country: US (occurrence: US)
  Receive Date: 20150709
  Receipt Date: 20150709
  Transmission Date: 20151125
  Serious: No
  Sender: FDA-Public Use
  Company Number: US-SA-2015SA085196

PATIENT
  Age: 54 Year
  Sex: Male

DRUGS (1)
  1. AFREZZA [Suspect]
     Active Substance: INSULIN HUMAN
     Indication: TYPE 2 DIABETES MELLITUS
     Route: 055

REACTIONS (4)
  - Sneezing [Unknown]
  - Throat irritation [Unknown]
  - Cough [Unknown]
  - Nasal discomfort [Unknown]
